FAERS Safety Report 4402717-1 (Version None)
Quarter: 2004Q3

REPORT INFORMATION
  Report Type: 
  Country: None (occurrence: None)
  Receive Date: 20040720
  Receipt Date: 20040720
  Transmission Date: 20050211
  Serious: Yes (Life-Threatening, Hospitalization)
  Sender: FDA-Public Use
  Company Number: None

PATIENT
  Age: 62 Year
  Sex: Female
  Weight: 119.3 kg

DRUGS (8)
  1. VICOPROFEN [Suspect]
     Indication: PAIN
     Dosage: [ ONE MONTH PRIOR TO 3/7/04]
     Dates: end: 20040307
  2. LASIX [Concomitant]
  3. URSODIOL [Concomitant]
  4. AMOXICILLIN [Concomitant]
  5. PROTONIX [Concomitant]
  6. VIT K [Concomitant]
  7. LACTULOSE [Concomitant]
  8. INSULIN [Concomitant]

REACTIONS (3)
  - HAEMATURIA [None]
  - HAEMODIALYSIS [None]
  - RENAL FAILURE ACUTE [None]
